FAERS Safety Report 4756039-X (Version None)
Quarter: 2005Q3

REPORT INFORMATION
  Report Type: 
  Country: None (occurrence: None)
  Receive Date: 20050830
  Receipt Date: 20050714
  Transmission Date: 20060218
  Serious: Yes (Other)
  Sender: FDA-Public Use
  Company Number: AU-BRISTOL-MYERS SQUIBB COMPANY-13037932

PATIENT
  Age: 60 Year
  Sex: Male
  Weight: 90 kg

DRUGS (2)
  1. CETUXIMAB [Suspect]
     Indication: COLORECTAL CANCER METASTATIC
     Dosage: FIRST INFUSION, 850 MG.  D/C AFTER 8 MINUTES.
     Route: 042
     Dates: start: 20050712, end: 20050712
  2. WARFARIN [Concomitant]
     Indication: PULMONARY EMBOLISM
     Dates: start: 20050601

REACTIONS (5)
  - BACK PAIN [None]
  - CHEST PAIN [None]
  - FLUSHING [None]
  - HYPERSENSITIVITY [None]
  - URTICARIA [None]
